FAERS Safety Report 18709873 (Version 1)
Quarter: 2021Q1

REPORT INFORMATION
  Report Type: Spontaneous
  Country: US (occurrence: US)
  Receive Date: 20210107
  Receipt Date: 20210107
  Transmission Date: 20210419
  Serious: Yes (Hospitalization, Other)
  Sender: FDA-Public Use
  Company Number: US-CIPLA LTD.-2020US09590

PATIENT

DRUGS (7)
  1. HALOPERIDOL. [Interacting]
     Active Substance: HALOPERIDOL
     Indication: SUICIDAL IDEATION
     Dosage: UNK
     Route: 065
  2. TACROLIMUS. [Interacting]
     Active Substance: TACROLIMUS
     Indication: PRODUCT USED FOR UNKNOWN INDICATION
     Dosage: UNK
     Route: 065
  3. CITALOPRAM [Suspect]
     Active Substance: CITALOPRAM HYDROBROMIDE
     Indication: SUICIDAL IDEATION
     Dosage: UNK
     Route: 065
  4. BENZTROPINE. [Interacting]
     Active Substance: BENZTROPINE
     Indication: SUICIDAL IDEATION
     Dosage: UNK
     Route: 065
  5. QUETIAPINE. [Interacting]
     Active Substance: QUETIAPINE
     Indication: SUICIDAL IDEATION
     Dosage: UNK
     Route: 065
  6. FLUOXETINE [Interacting]
     Active Substance: FLUOXETINE HYDROCHLORIDE
     Indication: SUICIDAL IDEATION
     Dosage: UNK
     Route: 065
  7. HYDROXYZINE [Interacting]
     Active Substance: HYDROXYZINE HYDROCHLORIDE
     Indication: SUICIDAL IDEATION
     Dosage: UNK
     Route: 065

REACTIONS (6)
  - Drug interaction [Unknown]
  - Mental disorder [Recovered/Resolved]
  - Toxicity to various agents [Recovered/Resolved]
  - Acute kidney injury [Recovered/Resolved]
  - Therapeutic drug monitoring analysis not performed [Unknown]
  - Tremor [Recovered/Resolved]
